FAERS Safety Report 24036440 (Version 2)
Quarter: 2024Q3

REPORT INFORMATION
  Report Type: Spontaneous
  Country: AR (occurrence: AR)
  Receive Date: 20240701
  Receipt Date: 20240708
  Transmission Date: 20241017
  Serious: Yes (Hospitalization)
  Sender: BIOMARIN
  Company Number: AR-BIOMARINAP-AR-2024-158867

PATIENT

DRUGS (1)
  1. VOXZOGO [Suspect]
     Active Substance: VOSORITIDE
     Indication: Osteochondrodysplasia
     Dosage: 0.25 MILLILITER, QD
     Route: 058
     Dates: start: 20220113

REACTIONS (4)
  - Brain herniation [Recovered/Resolved]
  - Brainstem compression [Recovered/Resolved]
  - Hydrocephalus [Recovered/Resolved]
  - Cerebral ventricle dilatation [Recovered/Resolved]

NARRATIVE: CASE EVENT DATE: 20240514
